FAERS Safety Report 10173728 (Version 1)
Quarter: 2014Q2

REPORT INFORMATION
  Report Type: Report from Study
  Country: CN (occurrence: CN)
  Receive Date: 20140515
  Receipt Date: 20140515
  Transmission Date: 20141212
  Serious: Yes (Other)
  Sender: FDA-Public Use
  Company Number: CN-ELI_LILLY_AND_COMPANY-CN201405001732

PATIENT
  Sex: Male
  Weight: 44 kg

DRUGS (2)
  1. ATOMOXETINE HYDROCHLORIDE [Suspect]
     Indication: ATTENTION DEFICIT/HYPERACTIVITY DISORDER
     Dosage: 37.5 MG, QD
     Route: 065
     Dates: start: 20120920
  2. ATOMOXETINE HYDROCHLORIDE [Suspect]
     Dosage: 25 MG, BID
     Route: 065

REACTIONS (2)
  - Jaundice [Unknown]
  - Drug ineffective [Unknown]
